FAERS Safety Report 9044608 (Version 1)
Quarter: 2013Q1

REPORT INFORMATION
  Report Type: Spontaneous
  Country: ES (occurrence: ES)
  Receive Date: 20130130
  Receipt Date: 20130130
  Transmission Date: 20140127
  Serious: Yes (Other)
  Sender: FDA-Public Use
  Company Number: ES-ROCHE-1185607

PATIENT
  Age: 80 Year
  Sex: Male

DRUGS (8)
  1. LUCENTIS [Suspect]
     Indication: DIABETIC RETINAL OEDEMA
     Route: 050
     Dates: start: 20121021
  2. LANSOPRAZOLE [Concomitant]
  3. ADIRO [Concomitant]
  4. BESITRAN [Concomitant]
  5. DIANBEN [Concomitant]
  6. LANTUS [Concomitant]
  7. NOVONORM [Concomitant]
  8. ORFIDAL [Concomitant]

REACTIONS (1)
  - Transient ischaemic attack [Recovered/Resolved]
